FAERS Safety Report 7573076-0 (Version None)
Quarter: 2011Q2

REPORT INFORMATION
  Report Type: 
  Country: None (occurrence: None)
  Receive Date: 20110627
  Receipt Date: 20110613
  Transmission Date: 20111010
  Serious: Yes (Other)
  Sender: FDA-Public Use
  Company Number: JP-MYLANLABS-2011S1012413

PATIENT
  Age: 63 Year
  Sex: Male

DRUGS (3)
  1. COLONY STIMULATING FACTORS [Concomitant]
     Indication: LEUKAEMIA
     Route: 065
  2. PACLITAXEL [Suspect]
     Indication: LUNG NEOPLASM MALIGNANT
     Dosage: DAYS 1 AND 8 FOR 2 CYCLES
     Route: 065
  3. CARBOPLATIN [Suspect]
     Indication: LUNG NEOPLASM MALIGNANT
     Dosage: AUC 3 ON DAYS 1 AND 8 FOR 2 CYCLES
     Route: 065

REACTIONS (1)
  - SARCOIDOSIS [None]
